FAERS Safety Report 13685447 (Version 1)
Quarter: 2017Q2

REPORT INFORMATION
  Report Type: Report from Study
  Country: US (occurrence: US)
  Receive Date: 20170623
  Receipt Date: 20170623
  Transmission Date: 20170830
  Serious: No
  Sender: FDA-Public Use
  Company Number: US-LEO PHARMA-280185

PATIENT
  Sex: Male

DRUGS (2)
  1. PROTOPIC [Suspect]
     Active Substance: TACROLIMUS
     Indication: DERMATITIS ATOPIC
     Dosage: 0.03 %, UNK
     Route: 061
     Dates: start: 20040219
  2. PROTOPIC [Suspect]
     Active Substance: TACROLIMUS
     Dates: start: 20070509

REACTIONS (1)
  - Branchial cyst [Unknown]

NARRATIVE: CASE EVENT DATE: 20071115
